FAERS Safety Report 9536494 (Version 2)
Quarter: 2013Q4

REPORT INFORMATION
  Report Type: Report from Study
  Country: US (occurrence: US)
  Receive Date: 20130919
  Receipt Date: 20131017
  Transmission Date: 20140711
  Serious: Yes (Hospitalization, Other)
  Sender: FDA-Public Use
  Company Number: US-ASTELLAS-2013US009656

PATIENT
  Sex: Female
  Weight: 41 kg

DRUGS (17)
  1. ERLOTINIB TABLET [Suspect]
     Indication: SQUAMOUS CELL CARCINOMA OF THE ORAL CAVITY
     Dosage: 150 MG, UID/QD
     Route: 048
     Dates: start: 20130301, end: 20130905
  2. CISPLATIN [Suspect]
     Indication: SQUAMOUS CELL CARCINOMA OF THE ORAL CAVITY
     Dosage: 75 MG/M2, Q3W
     Route: 042
     Dates: start: 20130301, end: 20130321
  3. DOCETAXEL [Suspect]
     Indication: SQUAMOUS CELL CARCINOMA OF THE ORAL CAVITY
     Dosage: 75 MG/M2, Q3W
     Route: 042
     Dates: start: 20130301, end: 20130509
  4. CARBOPLATIN [Suspect]
     Indication: PRODUCT USED FOR UNKNOWN INDICATION
     Dosage: 6 AUC, Q3W
     Route: 042
     Dates: start: 20130418, end: 20130509
  5. BACLOFEN [Concomitant]
     Indication: HICCUPS
     Dosage: 10 MG, PRN
     Route: 048
  6. CLINDAMYCIN [Concomitant]
     Indication: RASH
     Dosage: UNK
     Route: 061
  7. CLINDAMYCIN [Concomitant]
     Indication: SKIN IRRITATION
  8. GABAPENTIN [Concomitant]
     Indication: PRODUCT USED FOR UNKNOWN INDICATION
     Dosage: 10 ML, Q8 HOURS
     Route: 048
  9. DILAUDID [Concomitant]
     Indication: BREAKTHROUGH PAIN
     Dosage: 10 ML, PRN
     Route: 048
  10. METHADONE [Concomitant]
     Indication: PRODUCT USED FOR UNKNOWN INDICATION
     Dosage: 40 ML, Q8 HOURS
     Route: 048
  11. MIRALAX                            /00754501/ [Concomitant]
     Indication: PRODUCT USED FOR UNKNOWN INDICATION
     Dosage: 17 G, UID/QD
     Route: 048
  12. ZOFRAN                             /00955301/ [Concomitant]
     Indication: NAUSEA
     Dosage: 1 DF, Q8 HOURS
     Route: 060
  13. OXYCODONE [Concomitant]
     Indication: PAIN
     Dosage: 15 MG, PRN
     Route: 048
  14. SENNA                              /00142201/ [Concomitant]
     Indication: PRODUCT USED FOR UNKNOWN INDICATION
     Dosage: 10 ML, UID/QD
     Route: 048
  15. STOMATOLOGICALS, MOUTH PREPARATIONS [Concomitant]
     Indication: PRODUCT USED FOR UNKNOWN INDICATION
     Dosage: 10 ML, PRN
     Route: 048
  16. XYLOCITIN [Concomitant]
     Indication: PRODUCT USED FOR UNKNOWN INDICATION
     Dosage: 10 MG, UNKNOWN/D
     Route: 065
  17. AUGMENTIN                          /00756801/ [Concomitant]
     Indication: PRODUCT USED FOR UNKNOWN INDICATION
     Dosage: 10 ML, UNKNOWN/D
     Route: 048

REACTIONS (10)
  - Off label use [Unknown]
  - Diarrhoea [Recovered/Resolved]
  - Pulmonary mass [Unknown]
  - Failure to thrive [Not Recovered/Not Resolved]
  - Disease progression [Not Recovered/Not Resolved]
  - Ileus [Not Recovered/Not Resolved]
  - Somnolence [Not Recovered/Not Resolved]
  - Oral pain [Recovered/Resolved]
  - Nausea [Not Recovered/Not Resolved]
  - Oral infection [Not Recovered/Not Resolved]
